FAERS Safety Report 4724796-4 (Version None)
Quarter: 2005Q3

REPORT INFORMATION
  Report Type: 
  Country: None (occurrence: None)
  Receive Date: 20050726
  Receipt Date: 20050720
  Transmission Date: 20060218
  Serious: Yes (Hospitalization, Other)
  Sender: FDA-Public Use
  Company Number: 200515920US

PATIENT
  Age: 54 Year
  Sex: Female

DRUGS (4)
  1. LANTUS [Suspect]
     Indication: DIABETES MELLITUS NON-INSULIN-DEPENDENT
     Dosage: DOSE UNIT: UNITS
     Route: 051
  2. OPTICLIK (INSULIN INJECTION PEN) [Suspect]
     Route: 051
  3. TENORMIN [Concomitant]
     Dosage: DOSE: UNKNOWN
  4. GLUCOPHAGE [Concomitant]
     Dosage: DOSE: UNKNOWN

REACTIONS (6)
  - DRUG HYPERSENSITIVITY [None]
  - DYSARTHRIA [None]
  - GAIT DISTURBANCE [None]
  - HYPOAESTHESIA [None]
  - PARALYSIS [None]
  - TRANSIENT ISCHAEMIC ATTACK [None]
